FAERS Safety Report 17150426 (Version 1)
Quarter: 2019Q4

REPORT INFORMATION
  Report Type: Spontaneous
  Country: US (occurrence: US)
  Receive Date: 20191121
  Receipt Date: 20191121
  Transmission Date: 20200122
  Serious: No
  Sender: FDA-Public Use
  Company Number: None

PATIENT
  Age: 68 Year
  Sex: Female

DRUGS (1)
  1. IBRANCE [Suspect]
     Active Substance: PALBOCICLIB
     Indication: BREAST CANCER
     Dosage: 100MG BY MOUTH DAILY  OTHER
     Route: 058
     Dates: start: 201812

REACTIONS (3)
  - Toxicity to various agents [None]
  - Pyrexia [None]
  - Cytopenia [None]

NARRATIVE: CASE EVENT DATE: 20191023
